FAERS Safety Report 19410276 (Version 1)
Quarter: 2021Q2

REPORT INFORMATION
  Report Type: Spontaneous
  Country: US (occurrence: US)
  Receive Date: 20210611
  Receipt Date: 20210611
  Transmission Date: 20210717
  Serious: No
  Sender: FDA-Public Use
  Company Number: None

PATIENT
  Age: 76 Year
  Sex: Male
  Weight: 97.65 kg

DRUGS (1)
  1. PRIVIGEN [Suspect]
     Active Substance: HUMAN IMMUNOGLOBULIN G
     Dosage: ?          OTHER FREQUENCY:EVERY 4 WEEKS;?
     Route: 042
     Dates: start: 20210603, end: 20210603

REACTIONS (5)
  - Hypoaesthesia [None]
  - Loss of consciousness [None]
  - Pain [None]
  - Head injury [None]
  - Infusion related reaction [None]

NARRATIVE: CASE EVENT DATE: 20210604
